FAERS Safety Report 5161361-1 (Version None)
Quarter: 2006Q4

REPORT INFORMATION
  Report Type: 
  Country: None (occurrence: None)
  Receive Date: 20061130
  Receipt Date: 20060828
  Transmission Date: 20070319
  Serious: Yes (Hospitalization)
  Sender: FDA-Public Use
  Company Number: FR-ROCHE-461272

PATIENT
  Age: 7 Year
  Sex: Male
  Weight: 18 kg

DRUGS (7)
  1. ROVALCYTE [Suspect]
     Route: 048
     Dates: start: 20060508, end: 20060519
  2. PROGRAF [Concomitant]
  3. URSOLVAN [Concomitant]
  4. ADALATE LP [Concomitant]
  5. BACTRIM [Concomitant]
  6. MAGNESIUM [Concomitant]
     Dosage: DRUG REPORTED AS: MAG LP.
  7. UVESTEROL [Concomitant]

REACTIONS (2)
  - HEPATIC ENZYME INCREASED [None]
  - HEPATIC STEATOSIS [None]
